FAERS Safety Report 8545683 (Version 3)
Quarter: 2013Q4

REPORT INFORMATION
  Report Type: Spontaneous
  Country: FR (occurrence: FR)
  Receive Date: 20120503
  Receipt Date: 20131105
  Transmission Date: 20140711
  Serious: Yes (Death, Hospitalization)
  Sender: FDA-Public Use
  Company Number: FR-009507513-1204FRA00126

PATIENT
  Age: 70 Year
  Sex: Female

DRUGS (9)
  1. TIENAM IV [Suspect]
     Indication: SEPTIC SHOCK
     Dosage: 500 MG, Q6H
     Dates: start: 20120418, end: 20120422
  2. CANCIDAS [Suspect]
     Indication: SYSTEMIC CANDIDA
     Dosage: 70 MG, QD
     Dates: start: 20120420, end: 20120422
  3. CANCIDAS [Suspect]
     Dosage: 70 MG, QD
     Dates: start: 20120322, end: 20120408
  4. AMBISOME [Suspect]
     Indication: SYSTEMIC CANDIDA
     Dosage: 250 MG, QD
     Dates: start: 20120408, end: 20120422
  5. INEXIUM [Concomitant]
     Indication: PROPHYLAXIS AGAINST GASTROINTESTINAL ULCER
     Dosage: UNK
  6. MAGNESIUM SULFATE [Concomitant]
     Indication: ATRIAL FIBRILLATION
     Dosage: UNK
     Dates: start: 20120306
  7. NOREPINEPHRINE [Concomitant]
     Indication: SHOCK
     Dosage: UNK
     Dates: start: 20120306
  8. FOSFOMYCIN [Concomitant]
     Indication: SEPTIC SHOCK
     Dosage: 4 G, Q8H
     Dates: start: 20120418
  9. TARGOCID [Concomitant]
     Indication: SEPTIC SHOCK
     Dosage: 400 MG, BID
     Dates: start: 20120418

REACTIONS (2)
  - Hepatocellular injury [Unknown]
  - Death [Fatal]
